FAERS Safety Report 7271958-0 (Version None)
Quarter: 2011Q1

REPORT INFORMATION
  Report Type: 
  Country: None (occurrence: None)
  Receive Date: 20110203
  Receipt Date: 20110131
  Transmission Date: 20110831
  Serious: Yes (Other)
  Sender: FDA-Public Use
  Company Number: US-PFIZER INC-2008154688

PATIENT
  Sex: Male
  Weight: 88.435 kg

DRUGS (4)
  1. DILANTIN [Suspect]
     Indication: EPILEPSY
  2. DILANTIN [Suspect]
  3. DILANTIN [Suspect]
     Indication: CONVULSION
     Dosage: 100 MG, 2X/DAY
     Route: 048
     Dates: start: 19460101
  4. TRIDIONE [Concomitant]
     Indication: CONVULSION
     Dosage: 150 MG, UNK
     Dates: start: 19460101

REACTIONS (14)
  - EPILEPTIC AURA [None]
  - EYE DISORDER [None]
  - MOOD SWINGS [None]
  - LETHARGY [None]
  - ABNORMAL BEHAVIOUR [None]
  - FEELING COLD [None]
  - IRRITABILITY [None]
  - ARTHRITIS [None]
  - AGGRESSION [None]
  - FEELING HOT [None]
  - COLD SWEAT [None]
  - PALPITATIONS [None]
  - DYSPEPSIA [None]
  - HYPERHIDROSIS [None]
